FAERS Safety Report 10650349 (Version 1)
Quarter: 2014Q4

REPORT INFORMATION
  Report Type: Spontaneous
  Country: US (occurrence: US)
  Receive Date: 20141213
  Receipt Date: 20141213
  Transmission Date: 20150529
  Serious: No
  Sender: FDA-Public Use
  Company Number: US-ASTRAZENECA-2014SE74454

PATIENT
  Sex: Male

DRUGS (1)
  1. PULMICORT RESPULES [Suspect]
     Active Substance: BUDESONIDE
     Indication: SINUS DISORDER
     Route: 055

REACTIONS (6)
  - Product use issue [Not Recovered/Not Resolved]
  - Off label use [Not Recovered/Not Resolved]
  - Sinus disorder [Unknown]
  - Secretion discharge [Unknown]
  - Intentional product misuse [Unknown]
  - Drug ineffective [Unknown]
